FAERS Safety Report 21749233 (Version 1)
Quarter: 2022Q4

REPORT INFORMATION
  Report Type: Spontaneous
  Country: US (occurrence: US)
  Receive Date: 20221219
  Receipt Date: 20221219
  Transmission Date: 20230113
  Serious: No
  Sender: FDA-Public Use
  Company Number: US-Taiho Oncology Inc-EU-2019-03519

PATIENT
  Age: 71 Year
  Sex: Female
  Weight: 73.94 kg

DRUGS (2)
  1. LONSURF [Suspect]
     Active Substance: TIPIRACIL HYDROCHLORIDE\TRIFLURIDINE
     Indication: Colorectal cancer metastatic
     Dosage: CURRENT CYCLE 1. DOSAGE AND FREQUENCY UNKNOWN.
     Route: 048
     Dates: start: 20191015
  2. LOSARTAN [Concomitant]
     Active Substance: LOSARTAN
     Dosage: NI

REACTIONS (8)
  - Chromaturia [Unknown]
  - Urine output decreased [Unknown]
  - Faeces discoloured [Unknown]
  - Liver disorder [Unknown]
  - Jaundice [Unknown]
  - Illness [Unknown]
  - Fatigue [Unknown]
  - Urinary tract infection [Unknown]

NARRATIVE: CASE EVENT DATE: 20191001
